FAERS Safety Report 4685952-7 (Version None)
Quarter: 2005Q2

REPORT INFORMATION
  Report Type: 
  Country: None (occurrence: None)
  Receive Date: 20050606
  Receipt Date: 20050525
  Transmission Date: 20051028
  Serious: Yes (Hospitalization)
  Sender: FDA-Public Use
  Company Number: 200401537

PATIENT
  Age: 59 Year
  Sex: Female

DRUGS (5)
  1. BOTOX [Suspect]
     Indication: SKIN WRINKLING
     Dosage: 100 UNITS PRN IM
     Route: 030
     Dates: start: 20031003
  2. MONOPRIL [Concomitant]
  3. ZOCOR [Concomitant]
  4. FOSAMAX [Concomitant]
  5. VITAMINS [Concomitant]

REACTIONS (7)
  - BURNING SENSATION [None]
  - DYSPNOEA [None]
  - ERYTHEMA [None]
  - PARAESTHESIA [None]
  - PRURITUS GENERALISED [None]
  - SUNBURN [None]
  - URTICARIA [None]
